FAERS Safety Report 6121354-4 (Version None)
Quarter: 2009Q1

REPORT INFORMATION
  Report Type: 
  Country: None (occurrence: None)
  Receive Date: 20090313
  Receipt Date: 20090303
  Transmission Date: 20090719
  Serious: Yes (Hospitalization)
  Sender: FDA-Public Use
  Company Number: 8043693

PATIENT
  Age: 55 Year
  Sex: Male
  Weight: 110.4 kg

DRUGS (9)
  1. CIMZIA [Suspect]
     Indication: CROHN'S DISEASE
     Dosage: 400 MG SC
     Route: 058
  2. OMEPRAZOLE [Concomitant]
  3. ALPRAZOLAM [Concomitant]
  4. ASPIRIN [Concomitant]
  5. IMURAN [Concomitant]
  6. FLOMAX [Concomitant]
  7. GABAPENTIN [Concomitant]
  8. POTASSIUM CHLORIDE [Concomitant]
  9. SIMVASTATIN-MEPHA [Concomitant]

REACTIONS (2)
  - CEREBROVASCULAR ACCIDENT [None]
  - CONVULSION [None]
